FAERS Safety Report 24601233 (Version 1)
Quarter: 2024Q4

REPORT INFORMATION
  Report Type: Spontaneous
  Country: AU (occurrence: AU)
  Receive Date: 20241111
  Receipt Date: 20241111
  Transmission Date: 20250115
  Serious: Yes (Other)
  Sender: STRIDES
  Company Number: AU-STRIDES ARCOLAB LIMITED-2024SP014390

PATIENT
  Sex: Female

DRUGS (4)
  1. AMLODIPINE [Suspect]
     Active Substance: AMLODIPINE BESYLATE
     Indication: Hypertension
     Dosage: 10 MILLIGRAM, QD
     Route: 065
  2. LUTETIUM OXODOTREOTIDE LU-177 [Concomitant]
     Active Substance: LUTETIUM OXODOTREOTIDE LU-177
     Indication: Paraganglion neoplasm
     Dosage: UNK
     Route: 065
  3. SUNITINIB [Concomitant]
     Active Substance: SUNITINIB
     Indication: Paraganglion neoplasm
     Dosage: 50 MILLIGRAM, QD (HIGH DOSE )
     Route: 065
  4. SUNITINIB [Concomitant]
     Active Substance: SUNITINIB
     Dosage: UNK (RESTARTED AT LOW DOSE)
     Route: 065

REACTIONS (5)
  - Lethargy [Unknown]
  - Hyperaesthesia [Unknown]
  - Malaise [Unknown]
  - Nausea [Unknown]
  - Maternal exposure during pregnancy [Unknown]
